FAERS Safety Report 5744696-0 (Version None)
Quarter: 2008Q2

REPORT INFORMATION
  Report Type: 
  Country: None (occurrence: None)
  Receive Date: 20080520
  Receipt Date: 20080508
  Transmission Date: 20081010
  Serious: Yes (Death, Life-Threatening, Hospitalization, Disabling, Other)
  Sender: FDA-Public Use
  Company Number: GB-PFIZER INC-2004083547

PATIENT
  Age: 58 Year
  Sex: Male

DRUGS (3)
  1. EPANUTIN SUSPENSION [Suspect]
     Indication: CONVULSION
     Route: 065
     Dates: start: 20040101, end: 20040201
  2. CARBAMAZEPINE [Suspect]
     Indication: DRUG HYPERSENSITIVITY
     Route: 065
     Dates: start: 20040201, end: 20040727
  3. CARBAMAZEPINE [Suspect]
     Indication: CONVULSION

REACTIONS (8)
  - ALOPECIA [None]
  - APLASTIC ANAEMIA [None]
  - HYPERSENSITIVITY [None]
  - KLEBSIELLA SEPSIS [None]
  - RASH GENERALISED [None]
  - SKIN EXFOLIATION [None]
  - SKIN INFECTION [None]
  - STAPHYLOCOCCAL SEPSIS [None]
